FAERS Safety Report 16815548 (Version 1)
Quarter: 2019Q3

REPORT INFORMATION
  Report Type: Spontaneous
  Country: US (occurrence: US)
  Receive Date: 20190917
  Receipt Date: 20190917
  Transmission Date: 20191005
  Serious: No
  Sender: FDA-Public Use
  Company Number: US-ALLERGAN-1846396US

PATIENT
  Sex: Female

DRUGS (2)
  1. LINZESS [Suspect]
     Active Substance: LINACLOTIDE
     Indication: DOLICHOCOLON
     Dosage: 72 ?G, UNKNOWN
     Route: 065
  2. LINZESS [Suspect]
     Active Substance: LINACLOTIDE
     Dosage: 145 MCG AND 290 MCG
     Route: 065

REACTIONS (3)
  - Off label use [Unknown]
  - Frequent bowel movements [Unknown]
  - Drug ineffective for unapproved indication [Unknown]
